FAERS Safety Report 10259623 (Version 1)
Quarter: 2014Q2

REPORT INFORMATION
  Report Type: Report from Study
  Country: US (occurrence: US)
  Receive Date: 20140625
  Receipt Date: 20140625
  Transmission Date: 20141212
  Serious: No
  Sender: FDA-Public Use
  Company Number: PHEH2014US012670

PATIENT
  Age: 64 Year
  Sex: Female

DRUGS (10)
  1. TASIGNA [Suspect]
     Indication: CHRONIC MYELOID LEUKAEMIA
     Dosage: 300 MG, Q12H
     Route: 048
     Dates: start: 20140207
  2. AMITRIPTYLINE [Concomitant]
     Dosage: UNK UKN, UNK
  3. GABAPENTIN [Concomitant]
     Dosage: UNK UKN, UNK
  4. SYNTHROID [Concomitant]
     Dosage: UNK UKN, UNK
  5. TRIAMTERENE AND HYDROCHLOROTHIAZIDE [Concomitant]
     Dosage: UNK UKN, UNK
  6. TYLENOL [Concomitant]
     Dosage: UNK UKN, UNK
  7. KEPPRA [Concomitant]
     Dosage: UNK UKN, UNK
  8. TIZANIDINE [Concomitant]
     Dosage: UNK UKN, UNK
  9. MAALOX                                  /NET/ [Concomitant]
     Dosage: UNK UKN, UNK
  10. NUCYNTA [Concomitant]
     Dosage: UNK UKN, UNK

REACTIONS (5)
  - Paraesthesia [Not Recovered/Not Resolved]
  - Middle insomnia [Not Recovered/Not Resolved]
  - Fatigue [Not Recovered/Not Resolved]
  - Cough [Not Recovered/Not Resolved]
  - Pyrexia [Not Recovered/Not Resolved]
